FAERS Safety Report 6005397-7 (Version None)
Quarter: 2008Q4

REPORT INFORMATION
  Report Type: 
  Country: None (occurrence: None)
  Receive Date: 20081216
  Receipt Date: 20080811
  Transmission Date: 20090506
  Serious: Yes (Death)
  Sender: FDA-Public Use
  Company Number: IT-ELI_LILLY_AND_COMPANY-IT200808002766

PATIENT

DRUGS (1)
  1. GEMZAR [Suspect]
     Indication: NON-SMALL CELL LUNG CANCER
     Dosage: 1000 MG/M2, 10MG/M(2)/MIN ON DAYS 1 AND 8 OF EACH CYCLE
     Route: 065

REACTIONS (1)
  - DRUG TOXICITY [None]
